FAERS Safety Report 6597787-9 (Version None)
Quarter: 2010Q1

REPORT INFORMATION
  Report Type: 
  Country: None (occurrence: None)
  Receive Date: 20100216
  Receipt Date: 20100205
  Transmission Date: 20100710
  Serious: Yes (Hospitalization)
  Sender: FDA-Public Use
  Company Number: WAES 0912USA00547

PATIENT
  Age: 71 Year
  Sex: Female
  Weight: 60.782 kg

DRUGS (10)
  1. DECADRON [Suspect]
     Indication: LUNG NEOPLASM MALIGNANT
     Dosage: 4 MG/DAILY/PO
     Route: 048
     Dates: start: 20090929
  2. DARVOCET-N 100 [Suspect]
     Indication: PAIN
     Dosage: 100 MG/Q4H/PO
     Route: 048
     Dates: start: 20091028
  3. PRILOSEC [Suspect]
     Indication: ABDOMINAL DISCOMFORT
     Dosage: 20 MG/BID/PO
     Route: 047
     Dates: start: 20090930
  4. BLINDED THERAPY [Suspect]
     Indication: COGNITIVE DISORDER
     Dosage: UNK  /P0
     Route: 048
     Dates: start: 20091006, end: 20091030
  5. BLINDED THERAPY [Suspect]
     Indication: PROPHYLAXIS
     Dosage: UNK  /P0
     Route: 048
     Dates: start: 20091006, end: 20091030
  6. BLINDED THERAPY [Suspect]
     Indication: COGNITIVE DISORDER
     Dosage: UNK  /P0
     Route: 048
     Dates: start: 20091113
  7. BLINDED THERAPY [Suspect]
     Indication: PROPHYLAXIS
     Dosage: UNK  /P0
     Route: 048
     Dates: start: 20091113
  8. ATIVAN [Suspect]
     Indication: DRUG THERAPY
     Dosage: 1 MG/DAILY/IV; 1 MG/PRN/IV
     Route: 042
     Dates: start: 20090929
  9. ATIVAN [Suspect]
     Indication: DRUG THERAPY
     Dosage: 1 MG/DAILY/IV; 1 MG/PRN/IV
     Route: 042
     Dates: start: 20091002
  10. ATIVAN [Suspect]
     Indication: DRUG THERAPY
     Dosage: 1MG  PRN  IV
     Route: 042
     Dates: start: 20091002

REACTIONS (7)
  - ACTIVITIES OF DAILY LIVING IMPAIRED [None]
  - ACUTE PRERENAL FAILURE [None]
  - DEHYDRATION [None]
  - FATIGUE [None]
  - GENERAL PHYSICAL HEALTH DETERIORATION [None]
  - TROPONIN I INCREASED [None]
  - WEIGHT DECREASED [None]
